FAERS Safety Report 26176892 (Version 2)
Quarter: 2025Q4

REPORT INFORMATION
  Report Type: Spontaneous
  Country: US (occurrence: US)
  Receive Date: 20251218
  Receipt Date: 20251218
  Transmission Date: 20260117
  Serious: No
  Sender: SANDOZ
  Company Number: US-SANDOZ-SDZ2025US095679

PATIENT
  Sex: Female

DRUGS (1)
  1. ALBUTEROL SULFATE [Suspect]
     Active Substance: ALBUTEROL SULFATE
     Indication: Asthma
     Dosage: 90 MCG
     Route: 065

REACTIONS (5)
  - Influenza [Unknown]
  - Dyspnoea [Unknown]
  - Product packaging quantity issue [Unknown]
  - Device use issue [Unknown]
  - Device defective [Unknown]
